FAERS Safety Report 20686949 (Version 3)
Quarter: 2022Q2

REPORT INFORMATION
  Report Type: Spontaneous
  Country: AU (occurrence: None)
  Receive Date: 20220407
  Receipt Date: 20220624
  Transmission Date: 20220721
  Serious: Yes (Hospitalization, Other)
  Sender: FDA-Public Use
  Company Number: AU-ROCHE-3064624

PATIENT
  Age: 82 Year
  Sex: Female

DRUGS (3)
  1. PEGASYS [Suspect]
     Active Substance: PEGINTERFERON ALFA-2A
     Indication: Chronic myeloid leukaemia
     Route: 065
     Dates: start: 202103, end: 202111
  2. NILOTINIB [Suspect]
     Active Substance: NILOTINIB
     Indication: Chronic myeloid leukaemia
     Route: 065
  3. FUROSEMIDE [Concomitant]
     Active Substance: FUROSEMIDE

REACTIONS (15)
  - Gait inability [Unknown]
  - Dyspnoea [Unknown]
  - Muscular weakness [Unknown]
  - Cellulitis [Unknown]
  - Fluid retention [Unknown]
  - Erythema [Unknown]
  - Dry skin [Unknown]
  - Pulmonary arterial hypertension [Unknown]
  - Cardiac murmur [Unknown]
  - Heart valve incompetence [Unknown]
  - Right ventricular failure [Unknown]
  - Hepatosplenomegaly [Unknown]
  - Off label use [Unknown]
  - Drug interaction [Unknown]
  - Weight increased [Unknown]
